FAERS Safety Report 11943621 (Version 1)
Quarter: 2016Q1

REPORT INFORMATION
  Report Type: Spontaneous
  Country: US (occurrence: US)
  Receive Date: 20160125
  Receipt Date: 20160125
  Transmission Date: 20160526
  Serious: No
  Sender: FDA-Public Use
  Company Number: US-UNITED THERAPEUTICS-UNT-2015-013192

PATIENT
  Age: 54 Year
  Sex: Female
  Weight: 77.98 kg

DRUGS (4)
  1. LETAIRIS [Concomitant]
     Active Substance: AMBRISENTAN
     Indication: PRODUCT USED FOR UNKNOWN INDICATION
     Dosage: UNKNOWN
     Route: 065
  2. SILDENAFIL. [Concomitant]
     Active Substance: SILDENAFIL
     Indication: PRODUCT USED FOR UNKNOWN INDICATION
     Dosage: UNKNOWN
     Route: 065
  3. REMODULIN [Suspect]
     Active Substance: TREPROSTINIL
     Indication: PULMONARY HYPERTENSION
     Dosage: 0.097 ?G/KG/MIN, CONTINUING
     Route: 058
     Dates: start: 20140814
  4. REMODULIN [Suspect]
     Active Substance: TREPROSTINIL
     Dosage: UNK

REACTIONS (6)
  - Herpes zoster [Unknown]
  - Injury [Unknown]
  - Device dislocation [Unknown]
  - Cough [Unknown]
  - Venous haemorrhage [Unknown]
  - Drug dose omission [Unknown]

NARRATIVE: CASE EVENT DATE: 201510
